FAERS Safety Report 4805144-8 (Version None)
Quarter: 2005Q4

REPORT INFORMATION
  Report Type: 
  Country: None (occurrence: None)
  Receive Date: 20051017
  Receipt Date: 20050929
  Transmission Date: 20060501
  Serious: Yes (Hospitalization)
  Sender: FDA-Public Use
  Company Number: APP200500463

PATIENT
  Age: 51 Year
  Sex: Female

DRUGS (3)
  1. NEBUPENT [Suspect]
     Indication: PROPHYLAXIS
     Dosage: 1 IN 1 D, INHALATION
     Route: 055
  2. NEBUPENT [Suspect]
     Indication: RENAL TRANSPLANT
     Dosage: 1 IN 1 D, INHALATION
     Route: 055
  3. PERCOCET [Concomitant]

REACTIONS (5)
  - BLOOD CREATININE INCREASED [None]
  - COUGH [None]
  - LUNG INFILTRATION [None]
  - LUNG NEOPLASM [None]
  - PULMONARY MASS [None]
